FAERS Safety Report 8195483-8 (Version None)
Quarter: 2012Q1

REPORT INFORMATION
  Report Type: 
  Country: None (occurrence: None)
  Receive Date: 20120308
  Receipt Date: 20120305
  Transmission Date: 20120608
  Serious: Yes (Other)
  Sender: FDA-Public Use
  Company Number: PHHY2012BR019943

PATIENT
  Sex: Male

DRUGS (2)
  1. AMLODIPINE [Suspect]
     Dosage: 1 DF, PER DAY
  2. DIOVAN [Suspect]
     Indication: HYPERTENSION
     Dosage: 320 MG, PER DAY

REACTIONS (3)
  - CEREBROVASCULAR ACCIDENT [None]
  - SYNCOPE [None]
  - BLOOD GLUCOSE INCREASED [None]
